FAERS Safety Report 15801170 (Version 4)
Quarter: 2019Q3

REPORT INFORMATION
  Report Type: Spontaneous
  Country: US (occurrence: US)
  Receive Date: 20190109
  Receipt Date: 20190731
  Transmission Date: 20191004
  Serious: No
  Sender: FDA-Public Use
  Company Number: US-ASTRAZENECA-2019SE02150

PATIENT
  Age: 771 Month
  Sex: Male
  Weight: 92.5 kg

DRUGS (2)
  1. BYDUREON [Suspect]
     Active Substance: EXENATIDE
     Indication: TYPE 2 DIABETES MELLITUS
     Route: 058
     Dates: start: 201810
  2. METFORMIN [Concomitant]
     Active Substance: METFORMIN HYDROCHLORIDE
     Indication: TYPE 2 DIABETES MELLITUS
     Route: 065

REACTIONS (7)
  - Injection site nodule [Recovering/Resolving]
  - Needle issue [Unknown]
  - Injection site mass [Unknown]
  - Incorrect dose administered [Unknown]
  - Injection site extravasation [Recovered/Resolved]
  - Wrong technique in device usage process [Recovering/Resolving]
  - Device malfunction [Unknown]

NARRATIVE: CASE EVENT DATE: 201810
